FAERS Safety Report 4335691-7 (Version None)
Quarter: 2004Q2

REPORT INFORMATION
  Report Type: 
  Country: None (occurrence: None)
  Receive Date: 20040406
  Receipt Date: 20040322
  Transmission Date: 20050107
  Serious: Yes (Death, Life-Threatening)
  Sender: FDA-Public Use
  Company Number: M04-INT-047

PATIENT
  Age: 59 Year
  Sex: Female

DRUGS (4)
  1. INTEGRILIN [Suspect]
     Indication: PERIPHERAL ARTERY ANGIOPLASTY
     Dosage: 180 MCG/KG BOLUS X2, TEN MINUTES APART:  INTRAVENOUS BOLUS
     Route: 040
  2. ASPIRIN [Suspect]
     Indication: PERIPHERAL ARTERY ANGIOPLASTY
     Dosage: 325 MG QD:  ORAL
     Route: 048
  3. CLOPIDOGREL [Suspect]
     Indication: PERIPHERAL ARTERY ANGIOPLASTY
     Dosage: 75 MG QD X 3; BID FOR UNKNOWN DURATION:  ORAL
     Route: 048
  4. HEPARIN [Suspect]
     Indication: PERIPHERAL ARTERY ANGIOPLASTY
     Dosage: 30 UNITS/KG:  INTRAVENOUS BOLUS
     Route: 040

REACTIONS (3)
  - MULTI-ORGAN FAILURE [None]
  - SEPSIS [None]
  - URINARY TRACT INFECTION [None]
